FAERS Safety Report 14404881 (Version 1)
Quarter: 2018Q1

REPORT INFORMATION
  Report Type: Spontaneous
  Country: US (occurrence: US)
  Receive Date: 20180118
  Receipt Date: 20180118
  Transmission Date: 20180509
  Serious: No
  Sender: FDA-Public Use
  Company Number: US-AMGEN-USASP2018006057

PATIENT
  Age: 56 Year
  Sex: Female

DRUGS (5)
  1. FLU [Concomitant]
     Active Substance: INFLUENZA VIRUS VACCINE
  2. ENBREL [Suspect]
     Active Substance: ETANERCEPT
     Indication: SPONDYLOARTHROPATHY
  3. ENBREL [Suspect]
     Active Substance: ETANERCEPT
     Indication: IRITIS
     Dosage: UNK
     Route: 065
  4. ENBREL [Suspect]
     Active Substance: ETANERCEPT
     Indication: UVEITIS
  5. ENBREL [Suspect]
     Active Substance: ETANERCEPT
     Indication: CROHN^S DISEASE
     Dosage: 25 MG, 2 TIMES/WK
     Route: 065

REACTIONS (7)
  - Wrong technique in product usage process [Unknown]
  - Nasopharyngitis [Unknown]
  - Nasal congestion [Not Recovered/Not Resolved]
  - Influenza [Unknown]
  - Injection site reaction [Unknown]
  - Injection site pain [Unknown]
  - Off label use [Unknown]

NARRATIVE: CASE EVENT DATE: 201801
